FAERS Safety Report 9269599 (Version 3)
Quarter: 2013Q3

REPORT INFORMATION
  Report Type: Report from Study
  Country: JP (occurrence: JP)
  Receive Date: 20130503
  Receipt Date: 20130718
  Transmission Date: 20140515
  Serious: Yes (Hospitalization)
  Sender: FDA-Public Use
  Company Number: JP-NOVOPROD-376720

PATIENT
  Age: 91 Year
  Sex: Female

DRUGS (1)
  1. NOVONORM 0.5 MG [Suspect]
     Indication: TYPE 2 DIABETES MELLITUS
     Dosage: 0.5 MG, BID
     Route: 048
     Dates: start: 20120421, end: 20130227

REACTIONS (1)
  - Cerebral infarction [Recovering/Resolving]
